FAERS Safety Report 25059637 (Version 2)
Quarter: 2025Q1

REPORT INFORMATION
  Report Type: Spontaneous
  Country: US (occurrence: US)
  Receive Date: 20250310
  Receipt Date: 20250318
  Transmission Date: 20250408
  Serious: Yes (Other)
  Sender: ALEXION PHARMACEUTICALS
  Company Number: US-AstraZeneca-CH-00819351AP

PATIENT

DRUGS (1)
  1. BREZTRI [Suspect]
     Active Substance: BUDESONIDE\FORMOTEROL\GLYCOPYRROLATE
     Route: 065

REACTIONS (12)
  - Dyspnoea [Unknown]
  - Candida infection [Unknown]
  - Glossodynia [Unknown]
  - Tongue discomfort [Unknown]
  - Neoplasm malignant [Unknown]
  - Lung disorder [Unknown]
  - Incorrect dose administered by device [Unknown]
  - Product prescribing issue [Unknown]
  - Device use issue [Unknown]
  - Candida infection [Unknown]
  - Visual impairment [Unknown]
  - Product dose omission issue [Unknown]
